FAERS Safety Report 7370997-9 (Version None)
Quarter: 2011Q1

REPORT INFORMATION
  Report Type: 
  Country: None (occurrence: None)
  Receive Date: 20110321
  Receipt Date: 20110321
  Transmission Date: 20110831
  Serious: Yes (Life-Threatening)
  Sender: FDA-Public Use
  Company Number: None

PATIENT
  Age: 44 Year
  Sex: Female
  Weight: 52.1637 kg

DRUGS (3)
  1. GADOLINIUM BASED CONTRAST AGENTS [Suspect]
     Indication: NUCLEAR MAGNETIC RESONANCE IMAGING
     Dosage: ONCE
     Dates: start: 20110315, end: 20110315
  2. GADOLINIUM BASED CONTRAST AGENTS [Suspect]
     Indication: SCAN WITH CONTRAST
     Dosage: ONCE
     Dates: start: 20110315, end: 20110315
  3. GADOLINIUM [Suspect]

REACTIONS (9)
  - CONTRAST MEDIA REACTION [None]
  - DIZZINESS [None]
  - BRAIN OEDEMA [None]
  - INFLUENZA LIKE ILLNESS [None]
  - URTICARIA [None]
  - NAUSEA [None]
  - NERVE INJURY [None]
  - HEADACHE [None]
  - PAIN [None]
